FAERS Safety Report 5266006-8 (Version None)
Quarter: 2007Q1

REPORT INFORMATION
  Report Type: 
  Country: None (occurrence: None)
  Receive Date: 20070312
  Receipt Date: 20070312
  Transmission Date: 20070707
  Serious: Yes (Other)
  Sender: FDA-Public Use
  Company Number: None

PATIENT
  Age: 25 Year
  Sex: Female
  Weight: 104.3273 kg

DRUGS (1)
  1. ANCEF [Suspect]
     Indication: URINARY TRACT INFECTION
     Dosage: 2 GM Q 8 HRS IVPB
     Route: 042
     Dates: start: 20070308, end: 20070309

REACTIONS (3)
  - INFUSION SITE BRUISING [None]
  - INFUSION SITE ERYTHEMA [None]
  - OEDEMA PERIPHERAL [None]
